FAERS Safety Report 8329570-8 (Version None)
Quarter: 2012Q2

REPORT INFORMATION
  Report Type: 
  Country: None (occurrence: None)
  Receive Date: 20120502
  Receipt Date: 20120421
  Transmission Date: 20120825
  Serious: Yes (Hospitalization)
  Sender: FDA-Public Use
  Company Number: US-BAYER-2011-072105

PATIENT
  Age: 19 Year
  Sex: Female
  Weight: 83.9 kg

DRUGS (5)
  1. HYDROCODONE [Concomitant]
     Indication: PAIN
     Dosage: UNK
     Dates: start: 20091007
  2. CEFADROXIL [Concomitant]
     Dosage: 500 MG, UNK
     Dates: start: 20091016
  3. YAZ [Suspect]
     Dosage: UNK
     Route: 048
     Dates: start: 20090401, end: 20091001
  4. ONDANSETRON HCL [Concomitant]
     Indication: NAUSEA
     Dosage: 8 MG, UNK
     Dates: start: 20091007
  5. PROPOXYPHENE NAPSYLATE W/ ACETAMINOPHEN [Concomitant]
     Indication: PAIN
     Dosage: UNK
     Dates: start: 20091012

REACTIONS (8)
  - PAIN [None]
  - ANHEDONIA [None]
  - CHOLELITHIASIS [None]
  - GALLBLADDER INJURY [None]
  - CHOLECYSTITIS CHRONIC [None]
  - INJURY [None]
  - ANXIETY [None]
  - EMOTIONAL DISTRESS [None]
